FAERS Safety Report 18075498 (Version 1)
Quarter: 2020Q3

REPORT INFORMATION
  Report Type: Spontaneous
  Country: US (occurrence: US)
  Receive Date: 20200727
  Receipt Date: 20200727
  Transmission Date: 20201103
  Serious: No
  Sender: FDA-Public Use
  Company Number: US-ABBVIE-20K-163-3273384-00

PATIENT

DRUGS (2)
  1. SYNTHROID [Suspect]
     Active Substance: LEVOTHYROXINE SODIUM
     Indication: AUTOIMMUNE THYROIDITIS
     Route: 048
  2. SYNTHROID [Suspect]
     Active Substance: LEVOTHYROXINE SODIUM
     Indication: HYPOTHYROIDISM

REACTIONS (8)
  - Skin disorder [Unknown]
  - Blood thyroid stimulating hormone decreased [Unknown]
  - Asthenia [Unknown]
  - Myalgia [Unknown]
  - Insomnia [Unknown]
  - Drug ineffective [Unknown]
  - Weight fluctuation [Unknown]
  - Dyspepsia [Unknown]
